FAERS Safety Report 8294408-4 (Version None)
Quarter: 2012Q2

REPORT INFORMATION
  Report Type: 
  Country: None (occurrence: None)
  Receive Date: 20120416
  Receipt Date: 20120412
  Transmission Date: 20120825
  Serious: Yes (Hospitalization, Other)
  Sender: FDA-Public Use
  Company Number: ADR-2011-10236

PATIENT
  Sex: Female

DRUGS (1)
  1. LIORESAL [Suspect]
     Indication: MUSCLE SPASTICITY
     Dosage: 1855 MCG, DAILY, INTRAT
     Route: 037

REACTIONS (8)
  - THERAPEUTIC RESPONSE DECREASED [None]
  - CONDITION AGGRAVATED [None]
  - PRURITUS [None]
  - HYPERTONIA [None]
  - DEVICE INFUSION ISSUE [None]
  - POSTURING [None]
  - DYSTONIA [None]
  - WITHDRAWAL SYNDROME [None]
